FAERS Safety Report 4577864-4 (Version None)
Quarter: 2005Q1

REPORT INFORMATION
  Report Type: 
  Country: None (occurrence: None)
  Receive Date: 20050209
  Receipt Date: 20050128
  Transmission Date: 20050727
  Serious: Yes (Disabling, Other)
  Sender: FDA-Public Use
  Company Number: 2005023428

PATIENT
  Sex: Female
  Weight: 94.2 kg

DRUGS (1)
  1. DOSTINEX [Suspect]
     Indication: PROLACTINOMA
     Dosage: 2 MG, WEEKLY, ORAL
     Route: 048
     Dates: start: 20030401, end: 20041201

REACTIONS (1)
  - NEUROPATHY PERIPHERAL [None]
